FAERS Safety Report 24379585 (Version 1)
Quarter: 2024Q3

REPORT INFORMATION
  Report Type: Spontaneous
  Country: US (occurrence: US)
  Receive Date: 20240930
  Receipt Date: 20240930
  Transmission Date: 20241017
  Serious: No
  Sender: ASTELLAS
  Company Number: US-ASTELLAS-2024-AER-008593

PATIENT
  Age: 84 Year
  Sex: Female
  Weight: 46 kg

DRUGS (2)
  1. MYRBETRIQ [Suspect]
     Active Substance: MIRABEGRON
     Indication: Hypertonic bladder
     Dosage: 50MG ONCE DAILY
     Route: 065
     Dates: start: 202409
  2. NATTOKINASE [Suspect]
     Active Substance: NATTOKINASE
     Indication: Product used for unknown indication
     Dosage: 4000 FU, UNKNOWN FREQUENCY
     Route: 065
     Dates: start: 202409

REACTIONS (5)
  - Blood pressure decreased [Unknown]
  - Constipation [Unknown]
  - Rash pruritic [Recovered/Resolved]
  - Weight decreased [Recovering/Resolving]
  - Urine output increased [Unknown]

NARRATIVE: CASE EVENT DATE: 20240901
